FAERS Safety Report 20263863 (Version 3)
Quarter: 2022Q2

REPORT INFORMATION
  Report Type: Spontaneous
  Country: JP (occurrence: JP)
  Receive Date: 20211231
  Receipt Date: 20220406
  Transmission Date: 20220721
  Serious: Yes (Other)
  Sender: FDA-Public Use
  Company Number: JP-BAXTER-2021BAX042371

PATIENT
  Age: 6 Year
  Sex: Male

DRUGS (2)
  1. MESNA [Suspect]
     Active Substance: MESNA
     Indication: Product used for unknown indication
     Route: 065
  2. ASPARAGINASE [Suspect]
     Active Substance: ASPARAGINASE
     Indication: Acute lymphocytic leukaemia
     Dosage: INTENSIVE THERAPY
     Route: 030

REACTIONS (1)
  - Panniculitis [Recovering/Resolving]
